FAERS Safety Report 9358559 (Version 1)
Quarter: 2013Q2

REPORT INFORMATION
  Report Type: Spontaneous
  Country: DE (occurrence: DE)
  Receive Date: 20130620
  Receipt Date: 20130620
  Transmission Date: 20140414
  Serious: Yes (Congenital Anomaly)
  Sender: FDA-Public Use
  Company Number: GXKR2013DE002133

PATIENT
  Sex: 0

DRUGS (5)
  1. METHYLPREDNISOLONE [Suspect]
     Dosage: MATERNAL DOSE: 2X8 MG/D, 0.-34.GW
     Route: 064
  2. ARAVA [Concomitant]
     Dosage: MATERNAL DOES. 10 [MG/D ]/ CA 20 WEEKS PRECONCEPTIONAL
     Route: 064
  3. UTROGESTAN [Concomitant]
     Dosage: MATERNAL DOSE: 200 MG/D, 8.-16.GW
     Route: 064
  4. BIOPAROX [Concomitant]
     Dosage: MATERNAL DOSE: UKN, 31.-32. GW
     Route: 064
  5. ELEVIT PRONATAL [Concomitant]
     Dosage: MATERNAL DOSE: 0.8 MG/D, 0.-34.GW
     Route: 064

REACTIONS (8)
  - Congenital diaphragmatic hernia [Not Recovered/Not Resolved]
  - Osteogenesis imperfecta [Not Recovered/Not Resolved]
  - Ventricular septal defect [Not Recovered/Not Resolved]
  - Congenital inguinal hernia [Not Recovered/Not Resolved]
  - Congenital megacolon [Not Recovered/Not Resolved]
  - Intraventricular haemorrhage [Not Recovered/Not Resolved]
  - Areflexia [Not Recovered/Not Resolved]
  - Chondrodystrophy [Not Recovered/Not Resolved]
